FAERS Safety Report 4428939-1 (Version None)
Quarter: 2004Q3

REPORT INFORMATION
  Report Type: 
  Country: None (occurrence: None)
  Receive Date: 20040818
  Receipt Date: 20031223
  Transmission Date: 20050211
  Serious: No
  Sender: FDA-Public Use
  Company Number: US-GLAXOSMITHKLINE-A0494010A

PATIENT
  Age: 40 Year
  Sex: Female

DRUGS (1)
  1. LOTRONEX [Suspect]
     Indication: IRRITABLE BOWEL SYNDROME
     Route: 048
     Dates: start: 20000101, end: 20000101

REACTIONS (1)
  - ADVERSE EVENT [None]
